FAERS Safety Report 4457212-0 (Version None)
Quarter: 2004Q3

REPORT INFORMATION
  Report Type: 
  Country: None (occurrence: None)
  Receive Date: 20040922
  Receipt Date: 20040909
  Transmission Date: 20050211
  Serious: Yes (Other)
  Sender: FDA-Public Use
  Company Number: 2004232980US

PATIENT
  Sex: Female

DRUGS (3)
  1. PROVERA [Suspect]
  2. PREMARIN [Concomitant]
  3. LIPITOR [Concomitant]

REACTIONS (2)
  - CONVULSION [None]
  - PRECANCEROUS CELLS PRESENT [None]
